FAERS Safety Report 24831096 (Version 2)
Quarter: 2025Q2

REPORT INFORMATION
  Report Type: Report from Study
  Country: US (occurrence: US)
  Receive Date: 20250110
  Receipt Date: 20250507
  Transmission Date: 20250716
  Serious: Yes (Hospitalization, Other)
  Sender: ABBVIE
  Company Number: US-ABBVIE-6077577

PATIENT
  Age: 72 Year
  Sex: Male

DRUGS (1)
  1. HUMIRA [Suspect]
     Active Substance: ADALIMUMAB
     Indication: Ankylosing spondylitis
     Route: 058
     Dates: start: 202402

REACTIONS (5)
  - Post procedural haemorrhage [Recovering/Resolving]
  - Visual impairment [Not Recovered/Not Resolved]
  - Coronary artery occlusion [Recovering/Resolving]
  - Haematoma [Unknown]
  - Computerised tomogram heart abnormal [Unknown]

NARRATIVE: CASE EVENT DATE: 20241001
